FAERS Safety Report 7247100-9 (Version None)
Quarter: 2011Q1

REPORT INFORMATION
  Report Type: 
  Country: None (occurrence: None)
  Receive Date: 20110127
  Receipt Date: 20100422
  Transmission Date: 20110831
  Serious: No
  Sender: FDA-Public Use
  Company Number: US-BAUSCH-2010BL002145

PATIENT
  Age: 60 Year
  Sex: Female

DRUGS (1)
  1. ALAWAY [Suspect]
     Indication: EYE PRURITUS
     Route: 047
     Dates: start: 20100421, end: 20100422

REACTIONS (2)
  - OCULAR HYPERAEMIA [None]
  - INSTILLATION SITE PAIN [None]
